FAERS Safety Report 4953113-X (Version None)
Quarter: 2006Q1

REPORT INFORMATION
  Report Type: 
  Country: None (occurrence: None)
  Receive Date: 20060321
  Receipt Date: 20060314
  Transmission Date: 20060701
  Serious: Yes (Death, Hospitalization)
  Sender: FDA-Public Use
  Company Number: 2005BI019672

PATIENT
  Age: 41 Year
  Sex: Female

DRUGS (8)
  1. AVONEX [Suspect]
     Indication: MULTIPLE SCLEROSIS
     Dosage: 30 UG; QW; IM
     Route: 030
     Dates: start: 20050407, end: 20051101
  2. LANTUS [Concomitant]
  3. HUMALOG [Concomitant]
  4. ZOCOR [Concomitant]
  5. TRICOR [Concomitant]
  6. K-DUR 10 [Concomitant]
  7. LASIX [Concomitant]
  8. KEFLEX [Concomitant]

REACTIONS (8)
  - CATHETER RELATED INFECTION [None]
  - DECUBITUS ULCER [None]
  - DIARRHOEA [None]
  - INFECTED SKIN ULCER [None]
  - PILONIDAL CYST [None]
  - URINARY TRACT INFECTION [None]
  - VOMITING [None]
  - WEIGHT DECREASED [None]
